FAERS Safety Report 26121683 (Version 1)
Quarter: 2025Q4

REPORT INFORMATION
  Report Type: Report from Study
  Country: US (occurrence: US)
  Receive Date: 20251204
  Receipt Date: 20251204
  Transmission Date: 20260118
  Serious: Yes (Other)
  Sender: MYLAN
  Company Number: US-MYLANLABS-2025M1102817

PATIENT
  Age: 44 Year
  Sex: Female

DRUGS (8)
  1. TRETINOIN [Suspect]
     Active Substance: TRETINOIN
     Indication: Acute promyelocytic leukaemia
     Dosage: UNK, AS A PART OF INDUCTION THERAPY
  2. TRETINOIN [Suspect]
     Active Substance: TRETINOIN
     Dosage: UNK,AS A PART OF CONSOLIDATION THERAPY
  3. TRETINOIN [Suspect]
     Active Substance: TRETINOIN
     Dosage: UNK, AS A PART OF MAINTENANCE THERAPY
  4. MERCAPTOPURINE [Suspect]
     Active Substance: MERCAPTOPURINE
     Indication: Acute promyelocytic leukaemia
     Dosage: UNK, AS A PART OF MAINTENANCE THERAPY
  5. METHOTREXATE [Suspect]
     Active Substance: METHOTREXATE
     Indication: Acute promyelocytic leukaemia
     Dosage: UNK, AS A PART OF MAINTENANCE THERAPY
  6. DAUNORUBICIN [Suspect]
     Active Substance: DAUNORUBICIN
     Indication: Acute promyelocytic leukaemia
     Dosage: UNK, AS A PART OF INDUCTION THERAPY
  7. DAUNORUBICIN [Suspect]
     Active Substance: DAUNORUBICIN
     Dosage: UNK, AS A PART OF CONSOLIDATION THERAPY
  8. CYTARABINE [Suspect]
     Active Substance: CYTARABINE
     Indication: Acute promyelocytic leukaemia
     Dosage: UNK, AS A PART OF INDUCTION THERAPY

REACTIONS (2)
  - Myelodysplastic syndrome with excess blasts [Recovering/Resolving]
  - Product prescribing issue [Unknown]
